FAERS Safety Report 7330439-6 (Version None)
Quarter: 2011Q1

REPORT INFORMATION
  Report Type: 
  Country: None (occurrence: None)
  Receive Date: 20110304
  Receipt Date: 20110222
  Transmission Date: 20110831
  Serious: No
  Sender: FDA-Public Use
  Company Number: US-BIOGENIDEC-2011BI006939

PATIENT
  Sex: Female

DRUGS (3)
  1. TYSABRI [Suspect]
     Indication: MULTIPLE SCLEROSIS
     Route: 042
     Dates: start: 20091229
  2. BACLOFEN [Concomitant]
     Indication: FATIGUE
  3. PROVIGIL [Concomitant]
     Indication: FATIGUE

REACTIONS (4)
  - FATIGUE [None]
  - VITAMIN D DECREASED [None]
  - BLOOD IRON DECREASED [None]
  - MUSCLE SPASMS [None]
